FAERS Safety Report 4427369-6 (Version None)
Quarter: 2004Q3

REPORT INFORMATION
  Report Type: 
  Country: None (occurrence: None)
  Receive Date: 20040817
  Receipt Date: 20040219
  Transmission Date: 20050211
  Serious: No
  Sender: FDA-Public Use
  Company Number: US-GLAXOSMITHKLINE-A0499083A

PATIENT
  Age: 12 Year

DRUGS (1)
  1. EXOSURF [Suspect]
     Route: 039
     Dates: start: 19910101

REACTIONS (1)
  - MIGRAINE [None]
